FAERS Safety Report 8901402 (Version 2)
Quarter: 2012Q4

REPORT INFORMATION
  Report Type: 
  Country: JP (occurrence: JP)
  Receive Date: 20121109
  Receipt Date: 20121116
  Transmission Date: 20130627
  Serious: Yes (Hospitalization)
  Sender: FDA-Public Use
  Company Number: JP-JNJFOC-20121017468

PATIENT
  Age: 80 Year
  Sex: Female
  Weight: 42 kg

DRUGS (11)
  1. REMICADE [Suspect]
     Indication: RHEUMATOID ARTHRITIS
     Route: 042
     Dates: start: 20121004
  2. REMICADE [Suspect]
     Indication: RHEUMATOID ARTHRITIS
     Route: 042
     Dates: start: 20121018
  3. METHOTREXATE [Concomitant]
     Indication: RHEUMATOID ARTHRITIS
     Route: 048
     Dates: start: 20120328
  4. FOLIAMIN [Concomitant]
     Indication: RHEUMATOID ARTHRITIS
     Route: 048
     Dates: start: 20120328
  5. PREDNISOLONE [Concomitant]
     Indication: RHEUMATOID ARTHRITIS
     Route: 048
     Dates: start: 20120328
  6. FOIPAN [Concomitant]
     Indication: PANCREATITIS CHRONIC
     Route: 048
     Dates: start: 20081208
  7. NU-LOTAN [Concomitant]
     Indication: HYPERTENSION
     Route: 048
  8. CALBLOCK [Concomitant]
     Indication: HYPERTENSION
     Route: 048
  9. ALL OTHER THERAPEUTIC PRODUCTS [Concomitant]
     Indication: OSTEOPOROSIS
     Route: 048
  10. TALION [Concomitant]
     Indication: PREMEDICATION
     Route: 048
     Dates: start: 20121004, end: 20121018
  11. CALONAL [Concomitant]
     Indication: PREMEDICATION
     Route: 048

REACTIONS (6)
  - Hypertension [Recovered/Resolved]
  - Nausea [Recovered/Resolved]
  - Vomiting [Recovered/Resolved]
  - Heart rate increased [Unknown]
  - Pain [Unknown]
  - Insomnia [Unknown]
